FAERS Safety Report 5091735-9 (Version None)
Quarter: 2006Q3

REPORT INFORMATION
  Report Type: 
  Country: None (occurrence: None)
  Receive Date: 20060829
  Receipt Date: 20060315
  Transmission Date: 20061208
  Serious: No
  Sender: FDA-Public Use
  Company Number: US-BRISTOL-MYERS SQUIBB COMPANY-13316104

PATIENT
  Age: 57 Year
  Sex: Male

DRUGS (6)
  1. ERBITUX [Suspect]
     Indication: NEOPLASM MALIGNANT
     Route: 042
     Dates: start: 20060110
  2. ERBITUX [Suspect]
     Route: 042
     Dates: start: 20060120
  3. ERBITUX [Suspect]
     Route: 042
     Dates: start: 20060202
  4. GELCLAIR [Concomitant]
     Indication: NEOPLASM MALIGNANT
     Route: 061
  5. MOUTHWASH [Concomitant]
  6. OXYCODONE HCL [Concomitant]

REACTIONS (2)
  - ORAL PAIN [None]
  - STOMATITIS [None]
